FAERS Safety Report 23942554 (Version 1)
Quarter: 2024Q2

REPORT INFORMATION
  Report Type: Spontaneous
  Country: US (occurrence: US)
  Receive Date: 20240605
  Receipt Date: 20240605
  Transmission Date: 20240715
  Serious: No
  Sender: FDA-Public Use
  Company Number: US-HALEON-2180109

PATIENT
  Age: 12 Year
  Sex: Male

DRUGS (2)
  1. TERBINAFINE [Suspect]
     Active Substance: TERBINAFINE
     Indication: Pyrexia
  2. TERBINAFINE [Suspect]
     Active Substance: TERBINAFINE
     Indication: Culture positive

REACTIONS (1)
  - Drug ineffective [Unknown]
